FAERS Safety Report 5079498-4 (Version None)
Quarter: 2006Q3

REPORT INFORMATION
  Report Type: 
  Country: None (occurrence: None)
  Receive Date: 20060814
  Receipt Date: 20050811
  Transmission Date: 20061208
  Serious: No
  Sender: FDA-Public Use
  Company Number: US-BRISTOL-MYERS SQUIBB COMPANY-13073549

PATIENT
  Age: 64 Year
  Sex: Female
  Weight: 95 kg

DRUGS (1)
  1. GLUCOVANCE [Suspect]
     Dosage: 2.5MG/500MG
     Route: 048

REACTIONS (2)
  - HYPOGLYCAEMIA [None]
  - PAIN IN EXTREMITY [None]
